FAERS Safety Report 9300092 (Version 1)
Quarter: 2012Q4

REPORT INFORMATION
  Report Type: Spontaneous
  Country: US (occurrence: None)
  Receive Date: 20121107
  Receipt Date: 20121107
  Transmission Date: 20130627
  Serious: Yes (Other)
  Sender: FDA-Public Use
  Company Number: ADR-2012-01775

PATIENT
  Sex: Female

DRUGS (3)
  1. BACLOFEN [Suspect]
     Indication: PAIN
  2. CLONIDINE [Concomitant]
  3. MORPHINE [Concomitant]

REACTIONS (4)
  - Erythema [None]
  - Swelling [None]
  - Incision site infection [None]
  - General physical health deterioration [None]
